FAERS Safety Report 7586792-1 (Version None)
Quarter: 2011Q3

REPORT INFORMATION
  Report Type: 
  Country: None (occurrence: None)
  Receive Date: 20110701
  Receipt Date: 20110616
  Transmission Date: 20111222
  Serious: Yes (Other)
  Sender: FDA-Public Use
  Company Number: HR-WATSON-2011-09547

PATIENT
  Age: 41 Year
  Sex: Female

DRUGS (3)
  1. ALPRAZOLAM [Suspect]
     Indication: PRODUCT USED FOR UNKNOWN INDICATION
     Dosage: 0.5 MG, DAILY ONCE OR TWICE A WEEK
  2. ESCITALOPRAM [Suspect]
     Indication: DYSTHYMIC DISORDER
     Dosage: 5 MG, UNK
  3. SERTRALINE HYDROCHLORIDE [Suspect]
     Indication: DYSTHYMIC DISORDER
     Dosage: 25 MG, UNK

REACTIONS (4)
  - DRUG INEFFECTIVE [None]
  - ANGIOEDEMA [None]
  - URTICARIA [None]
  - DIARRHOEA [None]
